FAERS Safety Report 13189207 (Version 2)
Quarter: 2017Q3

REPORT INFORMATION
  Report Type: Report from Study
  Country: US (occurrence: US)
  Receive Date: 20170206
  Receipt Date: 20170824
  Transmission Date: 20171127
  Serious: Yes (Other)
  Sender: FDA-Public Use
  Company Number: US-AMGEN-USASL2017016819

PATIENT
  Age: 51 Year
  Sex: Female

DRUGS (2)
  1. WARFARIN [Concomitant]
     Active Substance: WARFARIN
     Dosage: 5 MG, UNK
  2. NPLATE [Suspect]
     Active Substance: ROMIPLOSTIM
     Indication: IMMUNE THROMBOCYTOPENIC PURPURA
     Dosage: UNK
     Route: 065
     Dates: start: 2012

REACTIONS (6)
  - International normalised ratio abnormal [Unknown]
  - Kidney infection [Unknown]
  - Intentional product misuse [Unknown]
  - Petechiae [Unknown]
  - Contusion [Unknown]
  - Platelet count decreased [Recovered/Resolved]

NARRATIVE: CASE EVENT DATE: 201611
